FAERS Safety Report 7633409-3 (Version None)
Quarter: 2011Q3

REPORT INFORMATION
  Report Type: 
  Country: None (occurrence: None)
  Receive Date: 20110725
  Receipt Date: 20110720
  Transmission Date: 20111222
  Serious: Yes (Hospitalization, Other)
  Sender: FDA-Public Use
  Company Number: US-PFIZER INC-2011164934

PATIENT
  Sex: Male
  Weight: 98.866 kg

DRUGS (5)
  1. ZOLOFT [Concomitant]
     Dosage: UNK
  2. METFORMIN [Concomitant]
     Indication: DIABETES MELLITUS
     Dosage: 500MG IN THE MORNING AND 1000MG AT NIGHT
  3. ACTOS [Concomitant]
     Indication: DIABETES MELLITUS
     Dosage: UNK
  4. NEURONTIN [Suspect]
     Dosage: UNK, ONCE A DAY
     Route: 048
     Dates: start: 20100901, end: 20101101
  5. OMEPRAZOLE [Concomitant]
     Indication: GASTRIC DISORDER
     Dosage: UNK

REACTIONS (3)
  - HALLUCINATION, VISUAL [None]
  - CORONARY ARTERY OCCLUSION [None]
  - HALLUCINATION [None]
